FAERS Safety Report 16460773 (Version 1)
Quarter: 2019Q2

REPORT INFORMATION
  Report Type: Report from Study
  Country: US (occurrence: US)
  Receive Date: 20190620
  Receipt Date: 20190620
  Transmission Date: 20190711
  Serious: Yes (Death, Life-Threatening, Hospitalization)
  Sender: FDA-Public Use
  Company Number: US-TEVA-2019-US-1064300

PATIENT
  Age: 42 Year
  Sex: Female

DRUGS (7)
  1. MIRTAZAPINE. [Concomitant]
     Active Substance: MIRTAZAPINE
     Route: 065
  2. DICYCLOMINE [Concomitant]
     Active Substance: DICYCLOMINE HYDROCHLORIDE
     Route: 065
  3. FLUOXETINE [Concomitant]
     Active Substance: FLUOXETINE HYDROCHLORIDE
     Route: 065
  4. RISPERIDONE. [Concomitant]
     Active Substance: RISPERIDONE
     Route: 065
  5. GABAPENTIN. [Suspect]
     Active Substance: GABAPENTIN
     Indication: SUICIDE ATTEMPT
     Route: 048
     Dates: start: 2013
  6. METFORMIN [Concomitant]
     Active Substance: METFORMIN HYDROCHLORIDE
     Route: 065
  7. OMEPRAZOLE. [Concomitant]
     Active Substance: OMEPRAZOLE
     Route: 065

REACTIONS (8)
  - Brain injury [Fatal]
  - Metabolic acidosis [Unknown]
  - Intentional overdose [Fatal]
  - Pulseless electrical activity [Unknown]
  - Bradycardia [Unknown]
  - Autonomic nervous system imbalance [Unknown]
  - Suicide attempt [Fatal]
  - Acute kidney injury [Unknown]

NARRATIVE: CASE EVENT DATE: 2013
